FAERS Safety Report 25386281 (Version 2)
Quarter: 2025Q2

REPORT INFORMATION
  Report Type: Spontaneous
  Country: AT (occurrence: AT)
  Receive Date: 20250602
  Receipt Date: 20250627
  Transmission Date: 20250717
  Serious: Yes (Hospitalization, Other)
  Sender: AMGEN
  Company Number: AT-ABBVIE-6280303

PATIENT
  Age: 56 Year
  Sex: Female

DRUGS (7)
  1. ADALIMUMAB [Suspect]
     Active Substance: ADALIMUMAB
     Indication: Rheumatoid arthritis
     Route: 058
  2. RINVOQ [Suspect]
     Active Substance: UPADACITINIB
     Indication: Peripheral spondyloarthritis
     Dosage: 30 MILLIGRAM, QD
     Route: 048
  3. RINVOQ [Suspect]
     Active Substance: UPADACITINIB
     Indication: Rheumatic disorder
     Dosage: 45 MILLIGRAM, QD
     Route: 048
     Dates: start: 2025
  4. RINVOQ [Suspect]
     Active Substance: UPADACITINIB
     Dosage: 15 MILLIGRAM, QD
     Route: 048
     Dates: start: 2021
  5. RINVOQ [Suspect]
     Active Substance: UPADACITINIB
     Route: 048
     Dates: end: 202407
  6. DICLOFENAC [Concomitant]
     Active Substance: DICLOFENAC
     Indication: Product used for unknown indication
     Route: 065
  7. MESALAMINE [Concomitant]
     Active Substance: MESALAMINE
     Indication: Product used for unknown indication
     Dosage: 3 GRAM, BID
     Route: 065

REACTIONS (40)
  - Pain [Unknown]
  - Vomiting [Unknown]
  - Faecaloma [Unknown]
  - Colon cancer [Unknown]
  - Large intestinal ulcer [Unknown]
  - Ileus [Recovering/Resolving]
  - Colitis [Recovered/Resolved]
  - Anastomotic complication [Recovering/Resolving]
  - Complicated appendicitis [Unknown]
  - Colitis [Unknown]
  - Abscess intestinal [Unknown]
  - Mechanical ileus [Unknown]
  - Intestinal ulcer [Unknown]
  - Gastrointestinal angiodysplasia [Unknown]
  - Cellulitis [Unknown]
  - Ulcer [Unknown]
  - Arthralgia [Recovering/Resolving]
  - Therapy non-responder [Unknown]
  - Cardiovascular disorder [Unknown]
  - Abdominal distension [Unknown]
  - Stenosis [Unknown]
  - Fatigue [Recovering/Resolving]
  - Procedural pain [Unknown]
  - Abdominal pain lower [Unknown]
  - Weight decreased [Unknown]
  - Asthenia [Unknown]
  - Rheumatic disorder [Unknown]
  - C-reactive protein increased [Unknown]
  - Abdominal pain [Unknown]
  - Abnormal faeces [Unknown]
  - Leukocytosis [Unknown]
  - Fatigue [Unknown]
  - Pruritus [Unknown]
  - Constipation [Unknown]
  - Thrombocytosis [Recovering/Resolving]
  - Abdominal pain [Recovered/Resolved]
  - Impaired healing [Unknown]
  - Herpes zoster [Unknown]
  - Muscular weakness [Unknown]
  - Anaemia [Recovered/Resolved]

NARRATIVE: CASE EVENT DATE: 20230101
